FAERS Safety Report 9837907 (Version 1)
Quarter: 2013Q4

REPORT INFORMATION
  Report Type: Spontaneous
  Country: US (occurrence: None)
  Receive Date: 20131205
  Receipt Date: 20131205
  Transmission Date: 20140711
  Serious: No
  Sender: FDA-Public Use
  Company Number: 163-POMAL-13102911

PATIENT
  Age: 56 Year
  Sex: Male
  Weight: 72.12 kg

DRUGS (8)
  1. POMALYST (POMALIDOMIDE) (4 MILLIGRAM, CAPSULES) [Suspect]
     Indication: PLASMA CELL MYELOMA
     Dosage: 4MG, 1 IN 1 D, PO
     Route: 048
     Dates: start: 201304
  2. AREDIA (PAMIDRONATE DISODIUM) (UNKNOWN) [Concomitant]
  3. OMEPRAZOLE (OMEPRAZOLE) (UNKNOWN) [Concomitant]
  4. ACYCLOVIR (ACICLOVIR) (ACICLOVIR) [Concomitant]
  5. ALFUZOSIN HCL (ALFUZOSIN HYDROCHLORIDE) (UNKNOWN) [Concomitant]
  6. MULTIVITAMINS (MULTIFITAMINS) (CAPSULES) [Concomitant]
  7. ADVIL (IBUPROFEN) (CAPSULES) [Concomitant]
  8. CALCIUM AND VITAMIN D (LEKOVIT CA) (CAPSULES) [Concomitant]

REACTIONS (3)
  - Eosinophil count increased [None]
  - Musculoskeletal chest pain [None]
  - Dyspnoea [None]
